FAERS Safety Report 10403043 (Version 2)
Quarter: 2014Q3

REPORT INFORMATION
  Report Type: Report from Study
  Country: PR (occurrence: PR)
  Receive Date: 20140822
  Receipt Date: 20140822
  Transmission Date: 20150326
  Serious: Yes (Hospitalization)
  Sender: FDA-Public Use
  Company Number: PR-ABBVIE-14K-131-1229889-00

PATIENT
  Age: 43 Year
  Sex: Male

DRUGS (2)
  1. IRON [Suspect]
     Active Substance: IRON
     Indication: HAEMOGLOBIN DECREASED
     Dates: start: 20140417
  2. HUMIRA [Suspect]
     Active Substance: ADALIMUMAB
     Indication: CROHN^S DISEASE
     Dates: start: 20140317

REACTIONS (10)
  - Palpitations [Not Recovered/Not Resolved]
  - Vomiting [Recovering/Resolving]
  - Haemoglobin decreased [Recovering/Resolving]
  - Dizziness [Not Recovered/Not Resolved]
  - Abdominal pain [Recovering/Resolving]
  - Serum ferritin decreased [Unknown]
  - Fatigue [Not Recovered/Not Resolved]
  - Muscular weakness [Not Recovered/Not Resolved]
  - Intestinal obstruction [Unknown]
  - Pyrexia [Not Recovered/Not Resolved]

NARRATIVE: CASE EVENT DATE: 2014
